FAERS Safety Report 11075417 (Version 1)
Quarter: 2015Q2

REPORT INFORMATION
  Report Type: Spontaneous
  Country: US (occurrence: US)
  Receive Date: 20150429
  Receipt Date: 20150429
  Transmission Date: 20150821
  Serious: No
  Sender: FDA-Public Use
  Company Number: US-BIOGENIDEC-2015BI055722

PATIENT
  Age: 27 Year
  Sex: Female

DRUGS (9)
  1. VITAMIN D3 [Concomitant]
     Active Substance: CHOLECALCIFEROL
  2. MULTI VITAMIN [Concomitant]
     Active Substance: VITAMINS
  3. BACLOFEN. [Concomitant]
     Active Substance: BACLOFEN
  4. CELEXA [Concomitant]
     Active Substance: CITALOPRAM HYDROBROMIDE
  5. DOCQLACE [Concomitant]
     Active Substance: DOCUSATE SODIUM
  6. VITAMIN C [Concomitant]
     Active Substance: ASCORBIC ACID
  7. TECFIDERA [Suspect]
     Active Substance: DIMETHYL FUMARATE
     Indication: MULTIPLE SCLEROSIS
     Route: 048
  8. VITAMIN B12 [Concomitant]
     Active Substance: CYANOCOBALAMIN
  9. XANAX [Concomitant]
     Active Substance: ALPRAZOLAM

REACTIONS (1)
  - Gait disturbance [Unknown]
